FAERS Safety Report 6559282-2 (Version None)
Quarter: 2010Q1

REPORT INFORMATION
  Report Type: 
  Country: None (occurrence: None)
  Receive Date: 20100129
  Receipt Date: 20090902
  Transmission Date: 20100710
  Serious: Yes (Other)
  Sender: FDA-Public Use
  Company Number: US-ABBOTT-09P-163-0589729-00

PATIENT
  Sex: Female
  Weight: 86.26 kg

DRUGS (13)
  1. HUMIRA [Suspect]
     Indication: RHEUMATOID ARTHRITIS
     Route: 058
     Dates: start: 20090321
  2. HUMIRA [Suspect]
     Route: 058
     Dates: start: 20090730
  3. HUMIRA [Suspect]
     Dates: start: 20090814
  4. PREDNISONE [Concomitant]
     Indication: RHEUMATOID ARTHRITIS
     Dates: start: 20090201, end: 20090701
  5. PREDNISONE [Concomitant]
     Dates: start: 20090727
  6. PLAQUENIL [Concomitant]
     Indication: RHEUMATOID ARTHRITIS
  7. DICLOFENAC [Concomitant]
     Indication: RHEUMATOID ARTHRITIS
  8. ULTRAM ER [Concomitant]
     Indication: ARTHRALGIA
  9. CYMBALTA [Concomitant]
     Indication: FIBROMYALGIA
  10. PREMARIN [Concomitant]
     Indication: HYSTERECTOMY
  11. LUNESTA [Concomitant]
     Indication: INSOMNIA
  12. TRAZODONE HCL [Concomitant]
     Indication: INSOMNIA
  13. BONIVA [Concomitant]
     Indication: OSTEOPOROSIS

REACTIONS (6)
  - BLOOD PRESSURE INCREASED [None]
  - DRUG INEFFECTIVE [None]
  - HEADACHE [None]
  - MIGRAINE [None]
  - NAUSEA [None]
  - VISION BLURRED [None]
